FAERS Safety Report 5371326-2 (Version None)
Quarter: 2007Q2

REPORT INFORMATION
  Report Type: 
  Country: None (occurrence: None)
  Receive Date: 20070615
  Receipt Date: 20061205
  Transmission Date: 20071010
  Serious: Yes (Hospitalization, Other)
  Sender: FDA-Public Use
  Company Number: 200618069US

PATIENT
  Sex: Female

DRUGS (4)
  1. LANTUS [Suspect]
     Dosage: 78 U QD SC
     Route: 058
     Dates: start: 20020101
  2. LANTUS [Suspect]
     Dosage: 40 U
  3. AMARYL [Concomitant]
  4. METFORMIN HYDROCHLORIDE [Concomitant]

REACTIONS (9)
  - BLOOD GLUCOSE DECREASED [None]
  - BLOOD GLUCOSE FLUCTUATION [None]
  - BLOOD GLUCOSE INCREASED [None]
  - DRUG INEFFECTIVE [None]
  - GLYCOSYLATED HAEMOGLOBIN INCREASED [None]
  - HYPOGLYCAEMIA [None]
  - HYPOGLYCAEMIC COMA [None]
  - INJECTION SITE INDURATION [None]
  - WEIGHT INCREASED [None]
